FAERS Safety Report 18779348 (Version 1)
Quarter: 2021Q1

REPORT INFORMATION
  Report Type: Spontaneous
  Country: DE (occurrence: DE)
  Receive Date: 20210125
  Receipt Date: 20210125
  Transmission Date: 20210419
  Serious: Yes (Other)
  Sender: FDA-Public Use
  Company Number: DE-AUROBINDO-AUR-APL-2021-002684

PATIENT
  Age: 61 Year
  Sex: Female

DRUGS (4)
  1. SACUBITRIL;VALSARTAN [Suspect]
     Active Substance: SACUBITRIL\VALSARTAN
     Indication: HYPERTENSION
     Dosage: UNK 2XD 97/103 MG, TWO TIMES A DAY
     Route: 065
  2. TORSEMIDE. [Suspect]
     Active Substance: TORSEMIDE
     Indication: HYPERTENSION
     Dosage: 5 MILLIGRAM, DAILY
     Route: 065
  3. BISOPROLOL [Suspect]
     Active Substance: BISOPROLOL
     Indication: HYPERTENSION
     Dosage: 20 MILLIGRAM, DAILY
     Route: 065
  4. LERCANIDIPINE [Suspect]
     Active Substance: LERCANIDIPINE
     Indication: HYPERTENSION
     Dosage: 30 MILLIGRAM, DAILY
     Route: 065

REACTIONS (1)
  - Acute kidney injury [Unknown]

NARRATIVE: CASE EVENT DATE: 2020
